FAERS Safety Report 5573046-8 (Version None)
Quarter: 2007Q4

REPORT INFORMATION
  Report Type: 
  Country: None (occurrence: None)
  Receive Date: 20071224
  Receipt Date: 20071213
  Transmission Date: 20080405
  Serious: Yes (Life-Threatening)
  Sender: FDA-Public Use
  Company Number: JP-ROCHE-521247

PATIENT
  Age: 30 Year
  Sex: Female
  Weight: 55 kg

DRUGS (5)
  1. TAMIFLU [Suspect]
     Route: 048
     Dates: start: 20070909, end: 20070910
  2. SYMMETREL [Concomitant]
     Route: 048
     Dates: start: 20070910
  3. GLYCEOL [Concomitant]
     Route: 042
     Dates: start: 20070910
  4. PREDOPA [Concomitant]
     Dosage: ROUTE: INJECTION.
     Route: 050
     Dates: start: 20070910, end: 20070913
  5. 1 CONCOMITANT DRUG [Concomitant]
     Dosage: DRUG: HYPNOTICS AND SEDATIVES, ANTIANXIETICS
     Dates: start: 20070910

REACTIONS (1)
  - VENTRICULAR FIBRILLATION [None]
